FAERS Safety Report 14530217 (Version 3)
Quarter: 2018Q2

REPORT INFORMATION
  Report Type: Spontaneous
  Country: US (occurrence: US)
  Receive Date: 20180214
  Receipt Date: 20180406
  Transmission Date: 20180711
  Serious: Yes (Other)
  Sender: FDA-Public Use
  Company Number: US-PFIZER INC-2018061807

PATIENT
  Age: 52 Year
  Sex: Female

DRUGS (1)
  1. SODIUM NITROPRUSSIDE. [Suspect]
     Active Substance: SODIUM NITROPRUSSIDE
     Indication: BLOOD PRESSURE SYSTOLIC INCREASED
     Dosage: UNK

REACTIONS (2)
  - Toxicity to various agents [Unknown]
  - Electrocardiogram abnormal [Unknown]
